FAERS Safety Report 6344586-9 (Version None)
Quarter: 2009Q3

REPORT INFORMATION
  Report Type: 
  Country: None (occurrence: None)
  Receive Date: 20090821
  Receipt Date: 20090518
  Transmission Date: 20100115
  Serious: No
  Sender: FDA-Public Use
  Company Number: 8046560

PATIENT
  Age: 26 Year
  Sex: Female
  Weight: 45 kg

DRUGS (4)
  1. CIMZIA [Suspect]
     Indication: CROHN'S DISEASE
     Dosage: 400 MG 1/2W SC
     Route: 058
     Dates: start: 20090430
  2. AMITIZA [Concomitant]
  3. ENTOCORT EC [Concomitant]
  4. PENTASA [Concomitant]

REACTIONS (5)
  - ABDOMINAL PAIN [None]
  - CHILLS [None]
  - HEADACHE [None]
  - OROPHARYNGEAL PAIN [None]
  - PYREXIA [None]
